FAERS Safety Report 5861315-3 (Version None)
Quarter: 2008Q3

REPORT INFORMATION
  Report Type: 
  Country: None (occurrence: None)
  Receive Date: 20080827
  Receipt Date: 20080416
  Transmission Date: 20090109
  Serious: No
  Sender: FDA-Public Use
  Company Number: US-ABBOTT-08P-163-0447460-00

PATIENT
  Sex: Female
  Weight: 82.174 kg

DRUGS (23)
  1. NIASPAN [Suspect]
     Indication: BLOOD TRIGLYCERIDES INCREASED
     Route: 048
     Dates: start: 20071201, end: 20071201
  2. NIASPAN [Suspect]
     Dates: start: 20080401
  3. ALPRAZOLAM [Concomitant]
     Indication: ANXIETY
     Dosage: 0.5 TO 2 MG DAILY
     Route: 048
  4. METFORMIN HCL [Concomitant]
     Indication: DIABETES MELLITUS
     Route: 048
  5. LANTUS [Concomitant]
     Indication: DIABETES MELLITUS
     Route: 058
  6. DIGOXIN [Concomitant]
     Indication: CARDIAC DISORDER
     Route: 048
  7. ESCITALOPRAM OXALATE [Concomitant]
     Indication: MOOD SWINGS
     Route: 048
  8. NITROGLYCERIN [Concomitant]
     Indication: CARDIAC DISORDER
     Route: 062
  9. NITROGLYCERIN [Concomitant]
     Indication: ANGINA PECTORIS
     Route: 060
  10. LANSOPRAZOLE [Concomitant]
     Indication: PROPHYLAXIS AGAINST GASTROINTESTINAL ULCER
     Route: 048
  11. NOVOLOG [Concomitant]
     Indication: DIABETES MELLITUS
     Dosage: SLIDING SCALE
     Route: 058
  12. AMLODIPINE [Concomitant]
     Indication: HYPERTENSION
     Route: 048
  13. METOPROLOL SUCCINATE [Concomitant]
     Indication: HYPERTENSION
     Dosage: ONE AND ONE-HALF TABLET TWICE A DAY
     Route: 048
  14. VYTORIN [Concomitant]
     Indication: BLOOD CHOLESTEROL
     Route: 048
  15. FENOFIBRATE [Concomitant]
     Indication: BLOOD CHOLESTEROL
     Route: 048
  16. CETIRIZINE HYDROCHLORIDE [Concomitant]
     Indication: HYPERSENSITIVITY
     Route: 048
  17. FUROSEMIDE [Concomitant]
     Indication: FLUID RETENTION
     Dosage: 1/2 TABLET EVERY OTHER DAY PRN
     Route: 048
  18. FISH OIL [Concomitant]
     Indication: NUTRITIONAL SUPPORT
     Route: 048
  19. CLOPIDOGREL [Concomitant]
     Indication: ANTICOAGULANT THERAPY
     Route: 048
  20. ACETAMINOPHEN [Concomitant]
     Indication: PAIN
     Dosage: 2 TABS AS PRN
     Route: 048
  21. ACETYLSALICYLIC ACID SRT [Concomitant]
     Indication: ANTICOAGULANT THERAPY
     Route: 048
  22. CETAPHIL [Concomitant]
     Indication: RASH
     Dosage: WASH 0.05 % DAILY
     Route: 062
  23. PHYSOHEX [Concomitant]
     Indication: RASH
     Dosage: WASH
     Route: 062

REACTIONS (6)
  - AURICULAR SWELLING [None]
  - FLUSHING [None]
  - HEADACHE [None]
  - PAIN [None]
  - PALPITATIONS [None]
  - PHARYNGEAL OEDEMA [None]
